FAERS Safety Report 10082088 (Version 1)
Quarter: 2014Q2

REPORT INFORMATION
  Report Type: Spontaneous
  Country: US (occurrence: US)
  Receive Date: 20140416
  Receipt Date: 20140416
  Transmission Date: 20141212
  Serious: Yes (Other)
  Sender: FDA-Public Use
  Company Number: US-TEVA-475048USA

PATIENT
  Sex: Female
  Weight: 67.65 kg

DRUGS (3)
  1. FENTORA [Suspect]
     Indication: BACK PAIN
     Route: 002
     Dates: start: 2003, end: 201403
  2. FENTORA [Suspect]
     Route: 002
     Dates: start: 201403
  3. OXYCODONE [Concomitant]
     Indication: PAIN
     Route: 048

REACTIONS (3)
  - Abasia [Unknown]
  - Constipation [Unknown]
  - Off label use [Unknown]
